FAERS Safety Report 5062062-0 (Version None)
Quarter: 2006Q3

REPORT INFORMATION
  Report Type: 
  Country: None (occurrence: None)
  Receive Date: 20060720
  Receipt Date: 20060720
  Transmission Date: 20061208
  Serious: Yes (Hospitalization)
  Sender: FDA-Public Use
  Company Number: None

PATIENT
  Age: 63 Year
  Sex: Male
  Weight: 107.5025 kg

DRUGS (11)
  1. COLCHICINE 0.6 MG TID [Suspect]
     Dosage: 0.6 MG TID
     Dates: start: 20060217
  2. COLCHICINE 0.6 MG TID [Suspect]
     Dosage: 0.6 MG TID
     Dates: start: 20060425
  3. ENALAPRIL MALEATE [Suspect]
     Dosage: 10 MG DAILY
     Dates: start: 20060217, end: 20060525
  4. FUROSEMIDE [Suspect]
     Dosage: 80 MG DAILY
     Dates: start: 20060217, end: 20060525
  5. GLIPIZIDE [Suspect]
     Dosage: 10 MG BID
     Dates: start: 20060217, end: 20060525
  6. NPH INSULIN [Suspect]
     Dosage: 48 UNITS AM, 110 UNITS PM
  7. REGULAR INSULIN [Suspect]
     Dosage: 26 UNITS AM + 22 UNITS PM
  8. SPIRONOLACTONE [Suspect]
     Dosage: 25 MG DAILY
     Dates: start: 20060217
  9. EZETIMIBE [Suspect]
     Dosage: 10 MG DAILY
  10. FISH OIL [Suspect]
  11. . [Concomitant]

REACTIONS (5)
  - DEHYDRATION [None]
  - DIARRHOEA [None]
  - HYPOGLYCAEMIA [None]
  - HYPOTENSION [None]
  - TREMOR [None]
